FAERS Safety Report 7952281-5 (Version None)
Quarter: 2011Q4

REPORT INFORMATION
  Report Type: 
  Country: None (occurrence: None)
  Receive Date: 20111201
  Receipt Date: 20111124
  Transmission Date: 20120403
  Serious: Yes (Death, Hospitalization)
  Sender: FDA-Public Use
  Company Number: GB-CELGENEUS-167-C5013-11110151

PATIENT
  Sex: Male
  Weight: 65.5 kg

DRUGS (3)
  1. PREDNISONE TAB [Concomitant]
     Dosage: 20 MILLIGRAM
     Route: 048
     Dates: start: 20111001, end: 20111031
  2. LENALIDOMIDE [Suspect]
     Dosage: 15 MILLIGRAM
     Route: 048
     Dates: start: 20110912, end: 20111017
  3. LENALIDOMIDE [Suspect]
     Indication: MANTLE CELL LYMPHOMA REFRACTORY
     Dosage: 15 MILLIGRAM
     Route: 048
     Dates: start: 20110131

REACTIONS (1)
  - MANTLE CELL LYMPHOMA [None]
